FAERS Safety Report 20199621 (Version 1)
Quarter: 2021Q4

REPORT INFORMATION
  Report Type: Spontaneous
  Country: US (occurrence: None)
  Receive Date: 20211217
  Receipt Date: 20211217
  Transmission Date: 20220303
  Serious: Yes (Other)
  Sender: FDA-Public Use
  Company Number: None

PATIENT
  Age: 27 Year
  Sex: Female
  Weight: 112.5 kg

DRUGS (1)
  1. CHLORAPREP [Suspect]
     Active Substance: CHLORHEXIDINE GLUCONATE\ISOPROPYL ALCOHOL
     Indication: Caesarean section
     Route: 061
     Dates: start: 20211207, end: 20211207

REACTIONS (6)
  - Application site rash [None]
  - Blister [None]
  - Rash pruritic [None]
  - Rash [None]
  - Post procedural complication [None]
  - Caesarean section [None]

NARRATIVE: CASE EVENT DATE: 20211207
